FAERS Safety Report 11766777 (Version 2)
Quarter: 2016Q1

REPORT INFORMATION
  Report Type: Report from Study
  Country: IL (occurrence: IL)
  Receive Date: 20151123
  Receipt Date: 20160307
  Transmission Date: 20160525
  Serious: Yes (Hospitalization)
  Sender: FDA-Public Use
  Company Number: IL-ABBVIE-15K-082-1497581-00

PATIENT
  Age: 30 Year
  Sex: Male

DRUGS (1)
  1. HUMIRA [Suspect]
     Active Substance: ADALIMUMAB
     Indication: COLITIS ULCERATIVE
     Route: 058
     Dates: start: 20151026

REACTIONS (7)
  - Abdominal distension [Recovering/Resolving]
  - Colitis ulcerative [Unknown]
  - Malnutrition [Recovering/Resolving]
  - Intestinal obstruction [Recovering/Resolving]
  - Oedema [Recovering/Resolving]
  - Weight decreased [Recovering/Resolving]
  - Haemoglobin decreased [Recovering/Resolving]

NARRATIVE: CASE EVENT DATE: 2015
